FAERS Safety Report 9740039 (Version 9)
Quarter: 2017Q1

REPORT INFORMATION
  Report Type: Report from Study
  Country: US (occurrence: US)
  Receive Date: 20131209
  Receipt Date: 20170316
  Transmission Date: 20170429
  Serious: Yes (Death, Hospitalization, Other)
  Sender: FDA-Public Use
  Company Number: US-ACTELION-A-US2013-92250

PATIENT
  Age: 31 Year
  Sex: Male

DRUGS (11)
  1. VENTAVIS [Suspect]
     Active Substance: ILOPROST
     Dosage: 5 MCG, UP TO 8XDAILY
     Route: 055
     Dates: end: 20150911
  2. VENTAVIS [Suspect]
     Active Substance: ILOPROST
     Dosage: 5 MCG, UP TO 8XDAILY
     Route: 055
     Dates: start: 201509
  3. MORPHINE SULFATE. [Concomitant]
     Active Substance: MORPHINE SULFATE
  4. VENTAVIS [Suspect]
     Active Substance: ILOPROST
     Dosage: 5 MCG, QID
     Route: 055
     Dates: start: 20150913
  5. VENTAVIS [Suspect]
     Active Substance: ILOPROST
     Dosage: 5 MCG, 6-8X/DAY
     Route: 055
     Dates: end: 20160603
  6. VENTAVIS [Suspect]
     Active Substance: ILOPROST
     Indication: PULMONARY ARTERIAL HYPERTENSION
     Dosage: 5 MCG, 3-4X/ DAY
     Route: 055
     Dates: start: 20130726
  7. VENTAVIS [Suspect]
     Active Substance: ILOPROST
     Dosage: 5 MCG, 12X/DAY
     Route: 055
  8. VENTAVIS [Suspect]
     Active Substance: ILOPROST
     Dosage: 5 MCG, 6-9 XS/ DAY
     Route: 055
  9. HYDREA [Concomitant]
     Active Substance: HYDROXYUREA
  10. VENTAVIS [Suspect]
     Active Substance: ILOPROST
     Dosage: UNK, 3-4X A DAY
     Route: 055
     Dates: start: 20141014
  11. LOVENOX [Concomitant]
     Active Substance: ENOXAPARIN SODIUM

REACTIONS (11)
  - Peripheral swelling [Recovering/Resolving]
  - Pulmonary arterial pressure increased [Unknown]
  - Pulmonary arterial hypertension [Unknown]
  - Venous thrombosis limb [Recovering/Resolving]
  - Condition aggravated [Unknown]
  - Sickle cell anaemia with crisis [Unknown]
  - Disease complication [Fatal]
  - Sickle cell anaemia [Fatal]
  - Pain [Unknown]
  - Concomitant disease aggravated [Recovered/Resolved]
  - Device issue [Unknown]

NARRATIVE: CASE EVENT DATE: 20160604
